FAERS Safety Report 5854302-2 (Version None)
Quarter: 2008Q3

REPORT INFORMATION
  Report Type: 
  Country: None (occurrence: None)
  Receive Date: 20080822
  Receipt Date: 20080813
  Transmission Date: 20090109
  Serious: Yes (Other)
  Sender: FDA-Public Use
  Company Number: DE-GILEAD-2008-0017493

PATIENT
  Age: 81 Year
  Sex: Male

DRUGS (1)
  1. VIREAD [Suspect]
     Indication: HEPATITIS B

REACTIONS (1)
  - CLOSTRIDIUM DIFFICILE COLITIS [None]
